FAERS Safety Report 5906735-3 (Version None)
Quarter: 2008Q4

REPORT INFORMATION
  Report Type: 
  Country: None (occurrence: None)
  Receive Date: 20081002
  Receipt Date: 20080924
  Transmission Date: 20090506
  Serious: Yes (Hospitalization)
  Sender: FDA-Public Use
  Company Number: IE-MERCK-0809GBR00115

PATIENT
  Age: 20 Year
  Sex: Male

DRUGS (6)
  1. ISENTRESS [Suspect]
     Route: 048
     Dates: start: 20080101
  2. TRUVADA [Concomitant]
     Route: 065
  3. DARUNAVIR [Concomitant]
     Route: 065
  4. RITONAVIR [Concomitant]
     Route: 065
  5. ETRAVIRINE [Concomitant]
     Route: 065
  6. PENTAMIDINE ISETHIONATE [Concomitant]
     Route: 065

REACTIONS (3)
  - ATRIOVENTRICULAR BLOCK SECOND DEGREE [None]
  - IMMUNE RECONSTITUTION SYNDROME [None]
  - PERICARDITIS [None]
